FAERS Safety Report 14239756 (Version 1)
Quarter: 2017Q4

REPORT INFORMATION
  Report Type: Spontaneous
  Country: IL (occurrence: IL)
  Receive Date: 20171130
  Receipt Date: 20171130
  Transmission Date: 20180321
  Serious: Yes (Other)
  Sender: FDA-Public Use
  Company Number: IL-TEVA-2017-IL-827498

PATIENT
  Age: 49 Year
  Sex: Female

DRUGS (2)
  1. CARBOPLATIN. [Suspect]
     Active Substance: CARBOPLATIN
     Indication: ENDOMETRIOSIS
     Dosage: TREATED WITH 8 CYCLES
  2. TAXOL [Suspect]
     Active Substance: PACLITAXEL
     Indication: ENDOMETRIOSIS
     Dosage: TREATED WITH 8 CYCLES

REACTIONS (2)
  - Carbohydrate antigen 125 increased [Unknown]
  - Clear cell endometrial carcinoma [Unknown]
